FAERS Safety Report 7265568-9 (Version None)
Quarter: 2011Q1

REPORT INFORMATION
  Report Type: 
  Country: None (occurrence: None)
  Receive Date: 20110131
  Receipt Date: 20110126
  Transmission Date: 20110831
  Serious: Yes (Hospitalization)
  Sender: FDA-Public Use
  Company Number: US-B.I. PHARMACEUTICALS,INC./RIDGEFIELD-2011-BP-00260BP

PATIENT
  Sex: Male

DRUGS (12)
  1. ACTONEL [Concomitant]
     Indication: OSTEOPOROSIS
     Dosage: 5 MG
     Route: 048
  2. ACIPHEX [Concomitant]
     Indication: REFLUX OESOPHAGITIS
     Dosage: 20 MG
     Route: 048
  3. XALATAN [Concomitant]
     Indication: GLAUCOMA
     Dosage: DROPS, 1 DROP OU QD
     Route: 031
  4. VITAMIN-MINERAL COMPOUND TAB [Concomitant]
     Indication: MACULAR DEGENERATION
     Dosage: 1 BID
     Route: 048
  5. SPIRIVA [Suspect]
     Dosage: 18 MCG
     Route: 055
     Dates: start: 20110104
  6. RITE-AID BRAND STOOL SOFTENER [Concomitant]
     Indication: FAECES HARD
     Dosage: 1 Q DAY
  7. SPIRIVA [Suspect]
     Indication: CHRONIC OBSTRUCTIVE PULMONARY DISEASE
     Dosage: 18 MCG
     Route: 055
     Dates: start: 20050101, end: 20101215
  8. FEXOFENADINE HCL [Concomitant]
     Indication: HYPERSENSITIVITY
     Dosage: 180 MG
     Route: 048
  9. FLOMAX [Suspect]
     Indication: PROSTATIC DISORDER
     Dosage: 4 MG
     Route: 048
  10. PROVENTIL [Concomitant]
     Indication: CHRONIC OBSTRUCTIVE PULMONARY DISEASE
     Dosage: IH, ONE PUFF QAM
     Route: 055
  11. RITE-AID BRAND MIRALAX [Concomitant]
     Indication: CONSTIPATION
     Dosage: 1 TSP DAY
  12. FOLIC ACID [Concomitant]
     Route: 048

REACTIONS (5)
  - DIVERTICULUM [None]
  - VISUAL ACUITY REDUCED [None]
  - HAEMORRHAGE [None]
  - ANAEMIA [None]
  - DYSPNOEA [None]
